FAERS Safety Report 5992116-3 (Version None)
Quarter: 2008Q4

REPORT INFORMATION
  Report Type: 
  Country: None (occurrence: None)
  Receive Date: 20081211
  Receipt Date: 20081210
  Transmission Date: 20090506
  Serious: Yes (Life-Threatening, Hospitalization, Other)
  Sender: FDA-Public Use
  Company Number: US-MERCK-0805USA00560

PATIENT
  Age: 63 Year
  Sex: Female

DRUGS (21)
  1. JANUVIA [Suspect]
     Indication: TYPE 1 DIABETES MELLITUS
     Route: 048
     Dates: start: 20080422, end: 20080424
  2. ATENOLOL [Suspect]
     Indication: ARRHYTHMIA
     Route: 048
  3. ATENOLOL [Suspect]
     Route: 065
  4. ATENOLOL [Suspect]
     Route: 065
  5. ATENOLOL [Suspect]
     Indication: SINUS TACHYCARDIA
     Route: 048
  6. ATENOLOL [Suspect]
     Route: 065
  7. ATENOLOL [Suspect]
     Route: 065
  8. LOTREL [Concomitant]
     Indication: HYPERTENSION
     Route: 065
  9. HUMALOG [Concomitant]
     Route: 065
  10. LANTUS [Concomitant]
     Route: 065
  11. NAPROSYN [Concomitant]
     Route: 065
  12. METFORMIN [Concomitant]
     Route: 065
  13. SYNTHROID [Concomitant]
     Route: 065
  14. PLAQUENIL [Concomitant]
     Route: 065
  15. XANAX [Concomitant]
     Route: 065
  16. VITAMINS (UNSPECIFIED) [Concomitant]
     Route: 065
  17. AMITRIPTYLINE HYDROCHLORIDE [Concomitant]
     Route: 065
  18. FLEXERIL [Concomitant]
     Route: 065
  19. URSODIOL [Concomitant]
     Route: 065
  20. PRILOSEC [Concomitant]
     Route: 065
  21. ASPIRIN [Concomitant]
     Route: 065

REACTIONS (8)
  - BLOOD GLUCOSE DECREASED [None]
  - CONTUSION [None]
  - HYPOGLYCAEMIA [None]
  - LOSS OF CONSCIOUSNESS [None]
  - OFF LABEL USE [None]
  - PAIN [None]
  - ROAD TRAFFIC ACCIDENT [None]
  - VOMITING [None]
